FAERS Safety Report 15849595 (Version 4)
Quarter: 2019Q2

REPORT INFORMATION
  Report Type: Report from Study
  Country: PL (occurrence: PL)
  Receive Date: 20190121
  Receipt Date: 20190417
  Transmission Date: 20190711
  Serious: Yes (Other)
  Sender: FDA-Public Use
  Company Number: PL-PFIZER INC-2019020822

PATIENT
  Sex: Male
  Weight: 1.7 kg

DRUGS (4)
  1. CUROSURF [Suspect]
     Active Substance: PORACTANT ALFA
     Indication: NEONATAL RESPIRATORY DISTRESS SYNDROME
     Dosage: 4.5 ML, (1X), PHARMACEUTICAL DOSE: ENDOTRACHEOPULMONARY INSTILLATION, SUSPENSION
     Route: 039
     Dates: start: 20181121, end: 20181121
  2. KETAMINE HCL [Suspect]
     Active Substance: KETAMINE HYDROCHLORIDE
     Indication: PREMEDICATION
     Dosage: 1 MG, (1X)
     Dates: start: 20181121, end: 20181121
  3. CAFFEINE CITRATE. [Concomitant]
     Active Substance: CAFFEINE CITRATE
     Indication: PRODUCT USED FOR UNKNOWN INDICATION
     Dosage: 20 MG/KG, UNK
     Dates: start: 20181121
  4. CAFFEINE CITRATE. [Concomitant]
     Active Substance: CAFFEINE CITRATE
     Dosage: 5 MG/KG, UNK

REACTIONS (2)
  - Overdose [Recovered/Resolved]
  - Neonatal hypoxia [Recovered/Resolved]

NARRATIVE: CASE EVENT DATE: 20181121
